FAERS Safety Report 9779810 (Version 3)
Quarter: 2014Q1

REPORT INFORMATION
  Report Type: Spontaneous
  Country: JP (occurrence: JP)
  Receive Date: 20131223
  Receipt Date: 20140204
  Transmission Date: 20141002
  Serious: Yes (Life-Threatening, Hospitalization)
  Sender: FDA-Public Use
  Company Number: JP-GLAXOSMITHKLINE-B0954675A

PATIENT
  Age: 66 Year
  Sex: Female

DRUGS (2)
  1. VALTREX [Suspect]
     Indication: HERPES SIMPLEX
     Dosage: 1000MG THREE TIMES PER DAY
     Route: 048
     Dates: start: 20131216, end: 20131216
  2. UNKNOWN DRUG [Concomitant]
     Indication: DIABETES MELLITUS
     Route: 065

REACTIONS (9)
  - Altered state of consciousness [Recovering/Resolving]
  - Depressed level of consciousness [Recovering/Resolving]
  - Convulsion [Unknown]
  - Loss of consciousness [Unknown]
  - Glossoptosis [Unknown]
  - Feeling abnormal [Unknown]
  - Atonic seizures [Recovered/Resolved]
  - Disorientation [Unknown]
  - Somnolence [Unknown]
